FAERS Safety Report 9257808 (Version 1)
Quarter: 2013Q2

REPORT INFORMATION
  Report Type: Spontaneous
  Country: US (occurrence: US)
  Receive Date: 20130426
  Receipt Date: 20130426
  Transmission Date: 20140414
  Serious: No
  Sender: FDA-Public Use
  Company Number: US-GLAXOSMITHKLINE-A0971348A

PATIENT
  Age: 89 Year
  Sex: Female

DRUGS (12)
  1. ZOFRAN [Suspect]
     Indication: HIATUS HERNIA
     Route: 065
     Dates: start: 20111101, end: 201203
  2. ZOFRAN [Suspect]
     Indication: VOMITING
     Route: 048
     Dates: start: 201203
  3. AMOXICILLIN [Concomitant]
  4. LASIX [Concomitant]
  5. RIVASTIGMINE [Concomitant]
  6. TERAZOSIN [Concomitant]
  7. OMEPRAZOLE [Concomitant]
  8. ZOLOFT [Concomitant]
  9. PANTOPRAZOLE [Concomitant]
  10. NITROFURANTOIN [Concomitant]
  11. NYSTATIN [Concomitant]
  12. INJECTION [Concomitant]

REACTIONS (4)
  - Heart rate increased [Unknown]
  - Somnolence [Unknown]
  - Sedation [Unknown]
  - Feeling abnormal [Unknown]
